FAERS Safety Report 15884422 (Version 1)
Quarter: 2019Q1

REPORT INFORMATION
  Report Type: Spontaneous
  Country: US (occurrence: US)
  Receive Date: 20190129
  Receipt Date: 20190129
  Transmission Date: 20190417
  Serious: No
  Sender: FDA-Public Use
  Company Number: US-ALEXION PHARMACEUTICALS INC.-A201901286

PATIENT
  Age: 50 Year
  Sex: Female

DRUGS (1)
  1. STRENSIQ [Suspect]
     Active Substance: ASFOTASE ALFA
     Indication: HYPOPHOSPHATASIA
     Dosage: UNK
     Route: 058
     Dates: start: 201512

REACTIONS (7)
  - Body temperature abnormal [Recovered/Resolved]
  - Injection site haemorrhage [Unknown]
  - Anxiety [Unknown]
  - Nightmare [Unknown]
  - Injection site pain [Unknown]
  - Tachycardia [Unknown]
  - Hypersensitivity [Recovered/Resolved]

NARRATIVE: CASE EVENT DATE: 20190121
